FAERS Safety Report 24779958 (Version 1)
Quarter: 2024Q4

REPORT INFORMATION
  Report Type: Spontaneous
  Country: EG (occurrence: EG)
  Receive Date: 20241226
  Receipt Date: 20241226
  Transmission Date: 20250114
  Serious: Yes (Hospitalization, Other)
  Sender: NOVO NORDISK
  Company Number: EG-NOVOPROD-1338628

PATIENT
  Age: 770 Month
  Sex: Male

DRUGS (1)
  1. NOVORAPID [Suspect]
     Active Substance: INSULIN ASPART
     Indication: Diabetes mellitus
     Dosage: 40 IU, QD (20U AT MORNING AND 20U AT NIGHT)
     Route: 058

REACTIONS (2)
  - Coronary arterial stent insertion [Recovered/Resolved]
  - Glycosylated haemoglobin increased [Unknown]
